FAERS Safety Report 5626575-2 (Version None)
Quarter: 2008Q1

REPORT INFORMATION
  Report Type: 
  Country: None (occurrence: None)
  Receive Date: 20080214
  Receipt Date: 20080204
  Transmission Date: 20080703
  Serious: Yes (Hospitalization)
  Sender: FDA-Public Use
  Company Number: ES-SANOFI-SYNTHELABO-A01200801223

PATIENT
  Age: 86 Year
  Sex: Male

DRUGS (6)
  1. HIBOR [Interacting]
     Indication: VENOUS STASIS
     Route: 065
     Dates: start: 20071116, end: 20071126
  2. FUROSEMIDE [Interacting]
     Indication: DRUG USE FOR UNKNOWN INDICATION
     Dosage: UNK
     Route: 065
     Dates: start: 20060101
  3. BENESTAN [Suspect]
     Indication: DRUG USE FOR UNKNOWN INDICATION
     Dosage: UNK
     Route: 048
     Dates: start: 20060101
  4. IBUPROFEN [Interacting]
     Indication: SKIN ULCER
     Route: 065
     Dates: start: 20071122
  5. DAFLON 500 [Interacting]
     Indication: VENOUS STASIS
     Route: 048
     Dates: start: 20071122
  6. SPIRIVA [Interacting]
     Indication: DRUG USE FOR UNKNOWN INDICATION
     Dosage: UNK
     Route: 055
     Dates: start: 20060101

REACTIONS (2)
  - DRUG INTERACTION [None]
  - PURPURA [None]
